FAERS Safety Report 5526915-9 (Version None)
Quarter: 2007Q4

REPORT INFORMATION
  Report Type: 
  Country: None (occurrence: None)
  Receive Date: 20071127
  Receipt Date: 20071115
  Transmission Date: 20080405
  Serious: Yes (Death)
  Sender: FDA-Public Use
  Company Number: JP-PFIZER INC-2007094032

PATIENT
  Age: 70 Year
  Sex: Male

DRUGS (3)
  1. ZOLOFT [Suspect]
     Indication: DEPRESSION
     Dosage: DAILY DOSE:25MG
     Route: 048
     Dates: start: 20071030, end: 20071030
  2. DOGMATYL [Concomitant]
     Indication: ANXIETY
     Route: 048
  3. MYSLEE [Concomitant]
     Indication: SLEEP DISORDER
     Route: 048
     Dates: start: 20070301, end: 20071030

REACTIONS (2)
  - CARDIAC ARREST [None]
  - RESPIRATORY ARREST [None]
